FAERS Safety Report 6263150-3 (Version None)
Quarter: 2009Q3

REPORT INFORMATION
  Report Type: 
  Country: None (occurrence: None)
  Receive Date: 20090710
  Receipt Date: 20090702
  Transmission Date: 20100115
  Serious: Yes (Hospitalization, Congenital Anomaly, Other)
  Sender: FDA-Public Use
  Company Number: US-PFIZER INC-2008049846

PATIENT
  Sex: Female
  Weight: 3.62 kg

DRUGS (2)
  1. ZOLOFT [Suspect]
     Indication: ANXIETY
     Dosage: 50 MG, 1X/DAY
     Route: 064
  2. BUSPAR [Concomitant]
     Dosage: 7.5 MG, AS NEEDED

REACTIONS (14)
  - AORTIC VALVE INCOMPETENCE [None]
  - BLOOD BILIRUBIN INCREASED [None]
  - CARDIAC MURMUR [None]
  - CONVULSION [None]
  - DRUG EXPOSURE DURING PREGNANCY [None]
  - GASTROENTERITIS [None]
  - HYPONATRAEMIA [None]
  - JAUNDICE NEONATAL [None]
  - MATERNAL DRUGS AFFECTING FOETUS [None]
  - MENINGITIS [None]
  - PNEUMONIA STREPTOCOCCAL [None]
  - PYREXIA [None]
  - SUPRAVALVULAR AORTIC STENOSIS [None]
  - VENTRICULAR HYPERTROPHY [None]
